FAERS Safety Report 7402081-X (Version None)
Quarter: 2011Q2

REPORT INFORMATION
  Report Type: 
  Country: None (occurrence: None)
  Receive Date: 20110408
  Receipt Date: 20110329
  Transmission Date: 20111010
  Serious: Yes (Hospitalization)
  Sender: FDA-Public Use
  Company Number: BR-SOLVAY-00311002703

PATIENT
  Age: 81 Year
  Sex: Male
  Weight: 63 kg

DRUGS (13)
  1. METFORMIN HCL [Concomitant]
     Indication: DIABETES MELLITUS
     Dosage: DAILY DOSE:  UNKNOWN
     Route: 065
  2. DIOVAN [Concomitant]
     Indication: HYPERTENSION
     Dosage: DAILY DOSE:  UNKNOWN
     Route: 065
  3. PLAVIX [Concomitant]
     Indication: DIABETES MELLITUS
     Dosage: DAILY DOSE:  UNKNOWN
     Route: 065
  4. ENDOFOLIN [Concomitant]
     Indication: POLYMYALGIA RHEUMATICA
     Dosage: DAILY DOSE:  UNKNOWN
     Route: 065
  5. OMEPRAZOLE [Concomitant]
     Indication: GASTRIC DISORDER
     Dosage: DAILY DOSE:  UNKNOWN
     Route: 065
  6. LYRICA [Concomitant]
     Indication: DEJA VU
     Dosage: DAILY DOSE:  UNKNOWN
     Route: 065
  7. AD-TIL [Concomitant]
     Indication: OSTEOPOROSIS
     Dosage: DAILY DOSE: 8 DROP(S)
     Route: 065
  8. UNKNOWN DRUG 12MG [Concomitant]
     Indication: PRODUCT USED FOR UNKNOWN INDICATION
     Dosage: DAILY DOSE:  UNKNOWN
     Route: 065
  9. CALCORT 6MG [Concomitant]
     Indication: POLYMYALGIA RHEUMATICA
     Dosage: DAILY DOSE:  UNKNOWN
     Route: 065
  10. PRANDIN [Concomitant]
     Indication: DIABETES MELLITUS
     Dosage: DAILY DOSE:  UNKNOWN
     Route: 065
  11. PROTOS 2MG [Concomitant]
     Indication: OSTEOPOROSIS
     Dosage: DAILY DOSE:  UNKNOWN
     Route: 065
  12. CREON [Suspect]
     Indication: PANCREATITIS CHRONIC
     Dosage: DAILY DOSE: 5 DOSAGE FORM, UNIT DOSE: 25.000
     Route: 048
     Dates: start: 20010101
  13. OSTEONUTRI [Concomitant]
     Indication: OSTEOPOROSIS
     Dosage: DAILY DOSE:  UNKNOWN
     Route: 065

REACTIONS (6)
  - ABDOMINAL PAIN [None]
  - DIABETES MELLITUS [None]
  - POLYMYALGIA RHEUMATICA [None]
  - DRUG INEFFECTIVE [None]
  - HYPERTENSION [None]
  - EMPHYSEMA [None]
